FAERS Safety Report 7920461-0 (Version None)
Quarter: 2011Q4

REPORT INFORMATION
  Report Type: 
  Country: None (occurrence: None)
  Receive Date: 20111117
  Receipt Date: 20111109
  Transmission Date: 20120403
  Serious: Yes (Other)
  Sender: FDA-Public Use
  Company Number: PHFR2011GB04216

PATIENT
  Sex: Female

DRUGS (12)
  1. FOLIC ACID [Concomitant]
     Dosage: 5 MG/DAY
     Route: 048
  2. LACTULOSE [Concomitant]
     Dosage: 10 ML, BID
     Route: 048
  3. PROCYCLIDINE HYDROCHLORIDE 2MG TAB [Concomitant]
     Dosage: 5 MG, BID
     Route: 048
  4. CLOZARIL [Suspect]
     Indication: SCHIZOPHRENIA
     Dosage: 425 MG/DAY
     Route: 048
     Dates: start: 20110421
  5. CLOZARIL [Suspect]
     Dosage: 325 MG/DAY
     Route: 048
     Dates: start: 20110801
  6. CLOZARIL [Suspect]
     Dosage: 100 MG MANE + 275 MG NOCTE
     Route: 048
  7. ASPIRIN [Concomitant]
     Dosage: 75 MG/DAY
     Route: 048
  8. SENNA [Concomitant]
     Dosage: 2 DF, QD
     Route: 048
  9. PIOGLITAZONE [Concomitant]
     Dosage: 30 MG, BID
     Route: 048
  10. GLICLAZIDE [Concomitant]
     Dosage: 160 MG, BID
  11. LANSOPRAZOLE [Concomitant]
     Dosage: 15 MG/DAY
     Route: 048
  12. SIMVASTATIN [Concomitant]
     Dosage: 40 MG, QD
     Route: 048

REACTIONS (5)
  - DIZZINESS [None]
  - ORTHOSTATIC HYPOTENSION [None]
  - TACHYCARDIA [None]
  - HAEMOGLOBIN DECREASED [None]
  - BLOOD PRESSURE FLUCTUATION [None]
